FAERS Safety Report 10868408 (Version 3)
Quarter: 2016Q1

REPORT INFORMATION
  Report Type: Spontaneous
  Country: US (occurrence: US)
  Receive Date: 20150225
  Receipt Date: 20160322
  Transmission Date: 20160525
  Serious: Yes (Other)
  Sender: FDA-Public Use
  Company Number: US-JNJFOC-20150208746

PATIENT
  Sex: Male

DRUGS (4)
  1. RISPERDAL [Suspect]
     Active Substance: RISPERIDONE
     Indication: SCHIZOPHRENIA
     Dosage: 2MG, 3MG, 4MG
     Route: 048
     Dates: start: 1997, end: 2009
  2. RISPERDAL [Suspect]
     Active Substance: RISPERIDONE
     Indication: AFFECTIVE DISORDER
     Dosage: 2MG, 3MG, 4MG
     Route: 048
     Dates: start: 1997, end: 2009
  3. RISPERDAL [Suspect]
     Active Substance: RISPERIDONE
     Indication: DEPRESSION
     Dosage: 2MG, 3MG, 4MG
     Route: 048
     Dates: start: 1997, end: 2009
  4. RISPERDAL [Suspect]
     Active Substance: RISPERIDONE
     Indication: BIPOLAR DISORDER
     Dosage: 2MG, 3MG, 4MG
     Route: 048
     Dates: start: 1997, end: 2009

REACTIONS (6)
  - Abnormal weight gain [Unknown]
  - Hyperprolactinaemia [Unknown]
  - Diabetes mellitus [Unknown]
  - Extrapyramidal disorder [Unknown]
  - Gynaecomastia [Unknown]
  - Galactorrhoea [Unknown]

NARRATIVE: CASE EVENT DATE: 1999
